FAERS Safety Report 7021578-8 (Version None)
Quarter: 2010Q3

REPORT INFORMATION
  Report Type: 
  Country: None (occurrence: None)
  Receive Date: 20100928
  Receipt Date: 20100910
  Transmission Date: 20110219
  Serious: Yes (Hospitalization, Other)
  Sender: FDA-Public Use
  Company Number: JPI-P-009957

PATIENT
  Age: 57 Year
  Sex: Female
  Weight: 111.1313 kg

DRUGS (17)
  1. XYREM [Suspect]
     Indication: FIBROMYALGIA
     Dosage: SEE IMAGE
     Route: 048
     Dates: start: 20100401, end: 20100101
  2. XYREM [Suspect]
     Indication: SOMNOLENCE
     Dosage: SEE IMAGE
     Route: 048
     Dates: start: 20100401, end: 20100101
  3. XYREM [Suspect]
     Indication: FIBROMYALGIA
     Dosage: SEE IMAGE
     Route: 048
     Dates: end: 20100201
  4. XYREM [Suspect]
     Indication: SOMNOLENCE
     Dosage: SEE IMAGE
     Route: 048
     Dates: end: 20100201
  5. XYREM [Suspect]
     Indication: FIBROMYALGIA
     Dosage: SEE IMAGE
     Route: 048
     Dates: start: 20100101
  6. XYREM [Suspect]
     Indication: SOMNOLENCE
     Dosage: SEE IMAGE
     Route: 048
     Dates: start: 20100101
  7. XYREM [Suspect]
     Indication: FIBROMYALGIA
     Dosage: SEE IMAGE
     Route: 048
     Dates: start: 20100712
  8. XYREM [Suspect]
     Indication: SOMNOLENCE
     Dosage: SEE IMAGE
     Route: 048
     Dates: start: 20100712
  9. PAROXETINE HCL [Suspect]
     Indication: DEPRESSION
     Dates: end: 20100701
  10. PAROXETINE HCL [Suspect]
     Indication: DEPRESSION
     Dates: start: 20100801, end: 20100913
  11. LEVOTHYROXINE [Concomitant]
  12. FLUOXETINE [Concomitant]
  13. VERAPAMIL [Concomitant]
  14. PREGABALIN [Concomitant]
  15. ESTROGEN [Concomitant]
  16. CLONIDINE [Concomitant]
  17. SYNTHROID [Concomitant]

REACTIONS (13)
  - ABNORMAL DREAMS [None]
  - AGGRESSION [None]
  - CONDITION AGGRAVATED [None]
  - CRYING [None]
  - DRUG WITHDRAWAL SYNDROME [None]
  - FAECAL INCONTINENCE [None]
  - FEELING ABNORMAL [None]
  - INCORRECT DOSE ADMINISTERED [None]
  - INSOMNIA [None]
  - INTESTINAL PROLAPSE [None]
  - NIGHTMARE [None]
  - SCREAMING [None]
  - TREATMENT NONCOMPLIANCE [None]
